FAERS Safety Report 9249477 (Version 1)
Quarter: 2013Q2

REPORT INFORMATION
  Report Type: Spontaneous
  Country: SE (occurrence: SE)
  Receive Date: 20130423
  Receipt Date: 20130423
  Transmission Date: 20140414
  Serious: Yes (Hospitalization, Other)
  Sender: FDA-Public Use
  Company Number: SE-GLAXOSMITHKLINE-B0878552A

PATIENT
  Age: 71 Year
  Sex: Female

DRUGS (6)
  1. NEOTIGASON [Suspect]
     Indication: PRODUCT USED FOR UNKNOWN INDICATION
     Dosage: 25MG PER DAY
     Route: 048
     Dates: start: 20100827
  2. SIMVASTATIN [Concomitant]
  3. TROMBYL [Concomitant]
  4. BISOPROLOL [Concomitant]
  5. METFORMIN [Concomitant]
  6. MIANSERIN [Concomitant]

REACTIONS (3)
  - Cerebrovascular accident [Unknown]
  - VIIth nerve paralysis [Unknown]
  - Fatigue [Unknown]
